FAERS Safety Report 6713836-9 (Version None)
Quarter: 2010Q2

REPORT INFORMATION
  Report Type: 
  Country: None (occurrence: None)
  Receive Date: 20100506
  Receipt Date: 20100428
  Transmission Date: 20101027
  Serious: Yes (Other)
  Sender: FDA-Public Use
  Company Number: FR-AMGEN-QUU394427

PATIENT
  Sex: Female
  Weight: 100 kg

DRUGS (1)
  1. NEULASTA [Suspect]
     Indication: DRUG USE FOR UNKNOWN INDICATION
     Route: 065

REACTIONS (4)
  - DEVICE RELATED INFECTION [None]
  - DRUG INEFFECTIVE [None]
  - FEBRILE BONE MARROW APLASIA [None]
  - SEPSIS [None]
